FAERS Safety Report 5533012-5 (Version None)
Quarter: 2007Q4

REPORT INFORMATION
  Report Type: 
  Country: None (occurrence: None)
  Receive Date: 20071204
  Receipt Date: 20071128
  Transmission Date: 20080405
  Serious: Yes (Death, Hospitalization)
  Sender: FDA-Public Use
  Company Number: US-ROCHE-533768

PATIENT
  Age: 73 Year
  Sex: Male

DRUGS (9)
  1. NAPROXEN [Suspect]
     Indication: OSTEOARTHRITIS
     Route: 065
     Dates: end: 20070313
  2. REVLIMID [Suspect]
     Indication: MULTIPLE MYELOMA
     Dosage: THE PATIENT WAS ON ORAL REVLIMID 15 MG DAILY FOR 21 OUT OF 28 DAYS.
     Route: 048
     Dates: start: 20070112, end: 20070305
  3. DEXAMETHASONE [Suspect]
     Indication: MULTIPLE MYELOMA
     Dosage: THE PATIENT WAS ON 40 MG DAILY FOR 4 DAYS EVERY 2 WEEKS.
     Route: 048
     Dates: start: 20070112, end: 20070305
  4. ALLOPURINOL [Concomitant]
     Indication: DRUG USE FOR UNKNOWN INDICATION
     Dosage: DOSGE, FREQUENCY AND ROUTE UNKNOWN
     Route: 065
     Dates: end: 20070313
  5. SERTRALINE [Concomitant]
     Indication: DEPRESSION
     Dosage: DOSE, FREQUENCY AND ROUTE UNKNOWN
     Route: 065
     Dates: end: 20070313
  6. SKELAXIN [Concomitant]
     Indication: DRUG USE FOR UNKNOWN INDICATION
     Dosage: DOSE, FREQUENCY AND ROUTE UNKNOWN
     Route: 065
     Dates: end: 20070313
  7. VICODIN [Concomitant]
     Indication: PAIN
     Dosage: DOSE, FREQUENCY AND ROUTE UNKNOWN
     Route: 065
     Dates: end: 20070313
  8. TOPROL-XL [Concomitant]
     Indication: HYPERTENSION
     Dosage: DOSE, FREQUENCY AND ROUTE UNKNOWN
     Route: 065
     Dates: end: 20070313
  9. ZANTAC [Concomitant]
     Indication: ULCER
     Dosage: DOSE, FREQUENCY AND ROUTE UNKNOWN
     Route: 065
     Dates: end: 20070313

REACTIONS (4)
  - DUODENAL ULCER HAEMORRHAGE [None]
  - MULTI-ORGAN FAILURE [None]
  - PNEUMONIA [None]
  - RESPIRATORY FAILURE [None]
